FAERS Safety Report 16655707 (Version 4)
Quarter: 2019Q3

REPORT INFORMATION
  Report Type: Spontaneous
  Country: ES (occurrence: ES)
  Receive Date: 20190801
  Receipt Date: 20190923
  Transmission Date: 20191004
  Serious: Yes (Other)
  Sender: FDA-Public Use
  Company Number: PHHY2019ES177453

PATIENT
  Age: 9 Month
  Sex: Male
  Weight: 9.6 kg

DRUGS (3)
  1. MINOXIDIL. [Suspect]
     Active Substance: MINOXIDIL
     Indication: PRODUCT USED FOR UNKNOWN INDICATION
     Dosage: UNK
     Route: 065
  2. OMEPRAZOL [Suspect]
     Active Substance: OMEPRAZOLE
     Dosage: 1.67 MG/KG, QD
     Route: 048
     Dates: start: 20190314, end: 20190410
  3. OMEPRAZOL [Suspect]
     Active Substance: OMEPRAZOLE
     Indication: GASTROOESOPHAGEAL REFLUX DISEASE
     Dosage: 0.83 MG/KG, QD
     Route: 048
     Dates: start: 20181217, end: 20190314

REACTIONS (2)
  - Product formulation issue [Recovered/Resolved]
  - Hypertrichosis [Recovering/Resolving]

NARRATIVE: CASE EVENT DATE: 2019
